FAERS Safety Report 14396620 (Version 1)
Quarter: 2018Q1

REPORT INFORMATION
  Report Type: Spontaneous
  Country: US (occurrence: US)
  Receive Date: 20180116
  Receipt Date: 20180116
  Transmission Date: 20180509
  Serious: No
  Sender: FDA-Public Use
  Company Number: US-ALLERGAN-1758969US

PATIENT
  Age: 45 Year
  Sex: Female
  Weight: 86.17 kg

DRUGS (4)
  1. TRAMADOL. [Concomitant]
     Active Substance: TRAMADOL
     Indication: MIGRAINE
  2. BOTOX [Suspect]
     Active Substance: ONABOTULINUMTOXINA
     Indication: MIGRAINE
     Dosage: UNK
     Dates: start: 20171010, end: 20171010
  3. ASPIRIN. [Concomitant]
     Active Substance: ASPIRIN
     Indication: MOYAMOYA DISEASE
     Dosage: 81 MG, QD
     Route: 048
  4. BUTALBITAL [Concomitant]
     Active Substance: BUTALBITAL
     Indication: MIGRAINE

REACTIONS (5)
  - Feeling hot [Recovered/Resolved]
  - Administration site pruritus [Recovering/Resolving]
  - Burning sensation [Recovered/Resolved]
  - Paraesthesia [Unknown]
  - Condition aggravated [Recovering/Resolving]

NARRATIVE: CASE EVENT DATE: 20171010
